FAERS Safety Report 18499531 (Version 1)
Quarter: 2020Q4

REPORT INFORMATION
  Report Type: Spontaneous
  Country: DE (occurrence: DE)
  Receive Date: 20201113
  Receipt Date: 20201113
  Transmission Date: 20210114
  Serious: Yes (Hospitalization)
  Sender: FDA-Public Use
  Company Number: DE-TEVA-2020-DE-1847641

PATIENT
  Age: 78 Year
  Sex: Male

DRUGS (6)
  1. PRAVASTATIN. [Concomitant]
     Active Substance: PRAVASTATIN
     Dosage: 10 MILLIGRAM DAILY;  0-0-1-0
  2. PREDNISOLON [Suspect]
     Active Substance: PREDNISOLONE
     Dosage: 20 MILLIGRAM DAILY; 1-0-0-0
     Route: 065
  3. EDOXABAN [Interacting]
     Active Substance: EDOXABAN TOSYLATE
     Dosage: 60 MILLIGRAM DAILY;  1-0-0-0
     Route: 065
  4. DICLOFENAC [Interacting]
     Active Substance: DICLOFENAC
     Dosage: 50 MILLIGRAM DAILY; 1-0-0-0
     Route: 065
  5. HYDROCHLOROTHIAZIDE WITH TRIAMTERENE [Concomitant]
     Active Substance: HYDROCHLOROTHIAZIDE\TRIAMTERENE
     Dosage: 1 DOSAGE FORMS DAILY; NK MG, 1-0-0-0
  6. CYANOCOBALAMIN. [Concomitant]
     Active Substance: CYANOCOBALAMIN
     Dosage: .025 MILLIGRAM DAILY; 1-0-0-0

REACTIONS (7)
  - Oedema peripheral [Unknown]
  - Condition aggravated [Unknown]
  - General physical health deterioration [Unknown]
  - Anaemia [Unknown]
  - Dyspnoea [Unknown]
  - Pallor [Unknown]
  - Labelled drug-drug interaction medication error [Unknown]
